FAERS Safety Report 4587482-X (Version None)
Quarter: 2005Q1

REPORT INFORMATION
  Report Type: 
  Country: None (occurrence: None)
  Receive Date: 20050215
  Receipt Date: 20050208
  Transmission Date: 20050727
  Serious: No
  Sender: FDA-Public Use
  Company Number: 2004UW25912

PATIENT
  Age: 85 Year
  Sex: Female
  Weight: 71.6683 kg

DRUGS (4)
  1. ARIMIDEX [Suspect]
     Indication: BREAST CANCER
     Dosage: 1 MG PO
     Route: 048
     Dates: start: 20040801
  2. SYNTHROID [Concomitant]
  3. FOLIC ACID [Concomitant]
  4. VITAMIN B6 [Concomitant]

REACTIONS (2)
  - PAPILLARY THYROID CANCER [None]
  - RECURRENT CANCER [None]
